FAERS Safety Report 6968670-1 (Version None)
Quarter: 2010Q3

REPORT INFORMATION
  Report Type: 
  Country: None (occurrence: None)
  Receive Date: 20100907
  Receipt Date: 20100830
  Transmission Date: 20110219
  Serious: Yes (Life-Threatening, Hospitalization)
  Sender: FDA-Public Use
  Company Number: SI-TEVA-247199ISR

PATIENT
  Age: 82 Year
  Sex: Female

DRUGS (2)
  1. DICLOFENAC SODIUM [Suspect]
     Indication: BACK PAIN
  2. ENALAPRIL MALEATE [Interacting]
     Indication: HYPERTENSION

REACTIONS (2)
  - DRUG INTERACTION [None]
  - HYPERKALAEMIA [None]
